FAERS Safety Report 9642939 (Version 2)
Quarter: 2014Q1

REPORT INFORMATION
  Report Type: Spontaneous
  Country: IT (occurrence: IT)
  Receive Date: 20131024
  Receipt Date: 20140102
  Transmission Date: 20141002
  Serious: Yes (Hospitalization)
  Sender: FDA-Public Use
  Company Number: IT-TEVA-438050ISR

PATIENT
  Age: 43 Year
  Sex: Female

DRUGS (4)
  1. CARBOLITHIUM 300MG [Suspect]
     Indication: BIPOLAR DISORDER
     Dosage: 900 MILLIGRAM DAILY;
     Route: 048
     Dates: start: 20130401, end: 20130709
  2. ACEDIUR 50MG+25MG [Interacting]
     Indication: HYPERTENSION
     Dosage: 1 DOSAGE FORMS DAILY; 1 DOSAGE FORM = ENALAPRIL MALEATE 50MG + HYDROCHLOROTHIAZIDE 25MG
     Route: 048
     Dates: start: 20130101, end: 20130709
  3. MIRTAZAPINA [Concomitant]
     Indication: BIPOLAR DISORDER
     Dosage: 15 MILLIGRAM DAILY;
     Route: 048
     Dates: start: 20130401, end: 20130709
  4. ABILIFY 5MG [Concomitant]
     Indication: BIPOLAR DISORDER
     Dosage: 5 MILLIGRAM DAILY;
     Route: 048
     Dates: start: 20130701, end: 20130709

REACTIONS (3)
  - Renal failure acute [Recovered/Resolved]
  - Toxicity to various agents [Recovered/Resolved]
  - Drug interaction [Recovered/Resolved]
